FAERS Safety Report 9024254 (Version 1)
Quarter: 2013Q1

REPORT INFORMATION
  Report Type: Spontaneous
  Country: IT (occurrence: IT)
  Receive Date: 20130121
  Receipt Date: 20130121
  Transmission Date: 20140127
  Serious: Yes (Life-Threatening)
  Sender: FDA-Public Use
  Company Number: PHHY2013IT004777

PATIENT
  Age: 65 Year
  Sex: Female

DRUGS (4)
  1. NILOTINIB [Suspect]
     Indication: CHRONIC MYELOID LEUKAEMIA
     Dosage: 800 MG, DAILY
     Dates: start: 20120629, end: 20120704
  2. LANSOX [Concomitant]
  3. CARVEDILOL [Concomitant]
  4. METFORMIN [Concomitant]

REACTIONS (1)
  - Pancreatitis acute [Recovered/Resolved]
